FAERS Safety Report 6895621-0 (Version None)
Quarter: 2010Q3

REPORT INFORMATION
  Report Type: 
  Country: None (occurrence: None)
  Receive Date: 20100802
  Receipt Date: 20100722
  Transmission Date: 20110219
  Serious: Yes (Death, Life-Threatening)
  Sender: FDA-Public Use
  Company Number: US-BAXTER-2010BH019785

PATIENT

DRUGS (1)
  1. PHENYLEPHRINE HYDROCHLORIDE [Suspect]
     Indication: PRODUCT USED FOR UNKNOWN INDICATION
     Route: 042
     Dates: start: 20090101

REACTIONS (2)
  - BRADYCARDIA [None]
  - CARDIO-RESPIRATORY ARREST [None]
